FAERS Safety Report 7908304-2 (Version None)
Quarter: 2011Q4

REPORT INFORMATION
  Report Type: 
  Country: None (occurrence: None)
  Receive Date: 20111111
  Receipt Date: 20111102
  Transmission Date: 20120403
  Serious: No
  Sender: FDA-Public Use
  Company Number: US-BIOGENIDEC-2011BI042001

PATIENT
  Sex: Female

DRUGS (8)
  1. ASPIRIN [Concomitant]
     Indication: HEADACHE
  2. DIOVAN [Concomitant]
     Indication: HYPERTENSION
  3. BACLOFEN [Concomitant]
     Indication: MULTIPLE SCLEROSIS
     Route: 048
  4. NOSE DROPS [Concomitant]
     Indication: SINUS DISORDER
  5. ALPRAZOLAM [Concomitant]
     Indication: PANIC ATTACK
     Route: 048
  6. AVONEX [Suspect]
     Indication: MULTIPLE SCLEROSIS
     Route: 030
  7. ALPRAZOLAM [Concomitant]
     Route: 048
  8. AMANTADINE HCL [Concomitant]
     Indication: TREMOR
     Route: 048

REACTIONS (12)
  - NERVE COMPRESSION [None]
  - EATING DISORDER [None]
  - HEMIPARESIS [None]
  - SCIATICA [None]
  - ARTHRALGIA [None]
  - DIZZINESS [None]
  - ASTHMA [None]
  - SOMNOLENCE [None]
  - INJECTION SITE HAEMATOMA [None]
  - INJECTION SITE PAIN [None]
  - INJECTION SITE HAEMORRHAGE [None]
  - JOINT SWELLING [None]
